FAERS Safety Report 6642762-9 (Version None)
Quarter: 2010Q1

REPORT INFORMATION
  Report Type: 
  Country: None (occurrence: None)
  Receive Date: 20100319
  Receipt Date: 20100310
  Transmission Date: 20100710
  Serious: Yes (Other)
  Sender: FDA-Public Use
  Company Number: US-ELI_LILLY_AND_COMPANY-US200903002756

PATIENT
  Sex: Male
  Weight: 91.156 kg

DRUGS (17)
  1. BYETTA [Suspect]
     Indication: TYPE 2 DIABETES MELLITUS
     Dosage: 5 UG, 2/D
     Route: 058
     Dates: start: 20060613
  2. BYETTA [Suspect]
     Dosage: 10 UG, 2/D
     Route: 058
     Dates: end: 20081218
  3. ALTACE [Concomitant]
     Dosage: 2.5 MG, DAILY (1/D)
     Route: 048
  4. HUMALOG MIX /01293501/ [Concomitant]
     Dosage: 75 U, DAILY (1/D)
  5. HUMALOG MIX /01293501/ [Concomitant]
     Dosage: 6 U, EACH EVENING
  6. LIPITOR [Concomitant]
     Dosage: 40 MG, DAILY (1/D)
  7. LOVASTATIN [Concomitant]
     Dosage: 40 MG, DAILY (1/D)
     Route: 048
  8. METFORMIN [Concomitant]
     Dosage: 1000 MG, DAILY (1/D)
     Route: 048
  9. METFORMIN [Concomitant]
     Dosage: 1000 MG, 2/D
     Route: 048
  10. HYDROCODONE BITARTRATE AND ACETAMINOPHEN [Concomitant]
     Dosage: UNK, AS NEEDED
     Route: 048
  11. ALPRAZOLAM [Concomitant]
     Dosage: 1 MG, EACH EVENING
     Route: 048
  12. NITROLINGUAL PUMPSPRAY [Concomitant]
  13. SIMVASTATIN [Concomitant]
     Dosage: 20 MG, DAILY (1/D)
     Route: 048
  14. TRAZODONE HCL [Concomitant]
     Dosage: 50 MG, EACH EVENING
     Route: 048
  15. SULFAMETHOXAZOLE AND TRIMETHOPRIM [Concomitant]
     Dosage: UNK, 2/D
     Route: 048
  16. PROMETHEGAN [Concomitant]
     Dosage: 25 MG, AS NEEDED
     Route: 054
  17. TRAMADOL HCL [Concomitant]

REACTIONS (3)
  - OFF LABEL USE [None]
  - PANCREATITIS ACUTE [None]
  - RENAL INJURY [None]
